FAERS Safety Report 10165682 (Version 1)
Quarter: 2014Q2

REPORT INFORMATION
  Report Type: Spontaneous
  Country: US (occurrence: US)
  Receive Date: 20140510
  Receipt Date: 20140510
  Transmission Date: 20141212
  Serious: No
  Sender: FDA-Public Use
  Company Number: US-BRISTOL-MYERS SQUIBB COMPANY-19886274

PATIENT
  Age: 65 Year
  Sex: Male
  Weight: 95.24 kg

DRUGS (9)
  1. BYDUREON [Suspect]
     Indication: TYPE 2 DIABETES MELLITUS
  2. METFORMIN [Concomitant]
     Route: 048
  3. GLIPIZIDE [Concomitant]
     Dosage: TWO  TABS
     Route: 048
  4. SIMVASTATIN [Concomitant]
  5. METOPROLOL [Concomitant]
  6. AVALIDE [Concomitant]
  7. NORVASC [Concomitant]
  8. BENICAR [Concomitant]
  9. HYDROCHLOROTHIAZIDE [Concomitant]

REACTIONS (3)
  - Injection site nodule [Not Recovered/Not Resolved]
  - Injection site haemorrhage [Recovered/Resolved]
  - Injection site pruritus [Recovered/Resolved]
